FAERS Safety Report 9633824 (Version 2)
Quarter: 2013Q4

REPORT INFORMATION
  Report Type: Spontaneous
  Country: US (occurrence: US)
  Receive Date: 20131021
  Receipt Date: 20131114
  Transmission Date: 20140711
  Serious: Yes (Hospitalization, Other)
  Sender: FDA-Public Use
  Company Number: US-PFIZER INC-2013299280

PATIENT
  Age: 62 Year
  Sex: Male
  Weight: 81.63 kg

DRUGS (2)
  1. LYRICA [Suspect]
     Indication: DIABETIC NEUROPATHY
     Dosage: 150 MG, 2X/DAY
     Route: 048
     Dates: start: 2012
  2. LORTAB [Concomitant]
     Dosage: UNK

REACTIONS (5)
  - Intestinal perforation [Unknown]
  - Anaemia [Unknown]
  - Blood test abnormal [Unknown]
  - Oedema peripheral [Unknown]
  - Neuropathy peripheral [Unknown]
